FAERS Safety Report 9286130 (Version 2)
Quarter: 2013Q2

REPORT INFORMATION
  Report Type: Report from Study
  Country: DE (occurrence: DE)
  Receive Date: 20130513
  Receipt Date: 20130513
  Transmission Date: 20140414
  Serious: Yes (Hospitalization)
  Sender: FDA-Public Use
  Company Number: DE-BAYER-201023087GPV

PATIENT
  Age: 76 Year
  Sex: Male
  Weight: 74 kg

DRUGS (76)
  1. REGORAFENIB [Suspect]
     Indication: COLORECTAL CANCER
     Dosage: CYCLE 1
     Route: 048
     Dates: start: 20091210, end: 20091216
  2. REGORAFENIB [Suspect]
     Indication: COLORECTAL CANCER
     Dosage: CYCLE 1
     Route: 048
     Dates: start: 20091224, end: 20091230
  3. REGORAFENIB [Suspect]
     Indication: COLORECTAL CANCER
     Dosage: CYCLE 2
     Route: 048
     Dates: start: 20100107, end: 20100113
  4. REGORAFENIB [Suspect]
     Indication: COLORECTAL CANCER
     Dosage: CYCLE 2
     Route: 048
     Dates: start: 20100118, end: 20100124
  5. REGORAFENIB [Suspect]
     Indication: COLORECTAL CANCER
     Dosage: CYCLE 3
     Route: 048
     Dates: start: 20100204, end: 20100210
  6. REGORAFENIB [Suspect]
     Indication: COLORECTAL CANCER
     Dosage: CYCLE 3
     Route: 048
     Dates: start: 20100218, end: 20100224
  7. REGORAFENIB [Suspect]
     Indication: COLORECTAL CANCER
     Dosage: CYCLE 4
     Route: 048
     Dates: start: 20100311, end: 20100317
  8. REGORAFENIB [Suspect]
     Indication: COLORECTAL CANCER
     Dosage: CYCLE 4
     Route: 048
     Dates: start: 20100401, end: 20100407
  9. REGORAFENIB [Suspect]
     Indication: COLORECTAL CANCER
     Dosage: CYCLE 5
     Route: 048
     Dates: start: 20100415, end: 20100421
  10. CALCIUMFOLINAT-GRY [Suspect]
     Indication: COLORECTAL CANCER
     Dosage: CYCLE 1
     Route: 042
     Dates: start: 20091207, end: 20091207
  11. CALCIUMFOLINAT-GRY [Suspect]
     Indication: COLORECTAL CANCER
     Dosage: CYCLE 1
     Route: 042
     Dates: start: 20091221, end: 20091221
  12. CALCIUMFOLINAT-GRY [Suspect]
     Indication: COLORECTAL CANCER
     Dosage: CYCLE 2
     Route: 042
     Dates: start: 20100104, end: 20100104
  13. CALCIUMFOLINAT-GRY [Suspect]
     Indication: COLORECTAL CANCER
     Dosage: CYCLE 2
     Route: 042
     Dates: start: 20100118, end: 20100118
  14. CALCIUMFOLINAT-GRY [Suspect]
     Indication: COLORECTAL CANCER
     Dosage: CYCLE 3
     Route: 042
     Dates: start: 20100201, end: 20100201
  15. CALCIUMFOLINAT-GRY [Suspect]
     Indication: COLORECTAL CANCER
     Dosage: CYCLE 3
     Route: 042
     Dates: start: 20100215, end: 20100215
  16. CALCIUMFOLINAT-GRY [Suspect]
     Indication: COLORECTAL CANCER
     Dosage: CYCLE 4
     Route: 042
     Dates: start: 20100308, end: 20100308
  17. CALCIUMFOLINAT-GRY [Suspect]
     Indication: COLORECTAL CANCER
     Dosage: CYCLE 4
     Route: 042
     Dates: start: 20100329, end: 20100329
  18. CALCIUMFOLINAT-GRY [Suspect]
     Indication: COLORECTAL CANCER
     Dosage: CYCLE 5
     Route: 042
     Dates: start: 20100412, end: 20100412
  19. 5-FU MEDAC [Suspect]
     Indication: COLORECTAL CANCER
     Dosage: CYCLE 1 BOLUS INJECTION PLUS INFUSION START - AS USED DOSE: 2400+400 MG
     Route: 042
     Dates: start: 20091207, end: 20091207
  20. 5-FU MEDAC [Suspect]
     Indication: COLORECTAL CANCER
     Dosage: CYCLE 1
     Route: 042
     Dates: start: 20091208, end: 20091209
  21. 5-FU MEDAC [Suspect]
     Indication: COLORECTAL CANCER
     Dosage: CYCLE 1 BOLUS INJECTION PLUS INFUSION START - AS USED DOSE: 2400+400 MG
     Route: 042
     Dates: start: 20091221, end: 20091221
  22. 5-FU MEDAC [Suspect]
     Indication: COLORECTAL CANCER
     Dosage: CYCLE 1
     Route: 042
     Dates: start: 20091222, end: 20091223
  23. 5-FU MEDAC [Suspect]
     Indication: COLORECTAL CANCER
     Dosage: CYCLE 2 BOLUS INJECTION PLUS INFUSION START - AS USED DOSE: 2400+400 MG
     Route: 042
     Dates: start: 20100104, end: 20100104
  24. 5-FU MEDAC [Suspect]
     Indication: COLORECTAL CANCER
     Dosage: CYCLE 2
     Route: 042
     Dates: start: 20100105, end: 20100106
  25. 5-FU MEDAC [Suspect]
     Indication: COLORECTAL CANCER
     Dosage: CYCLE 2 BOLUS INJECTION PLUS INFUSION START - AS USED DOSE: 2400+400 MG
     Route: 042
     Dates: start: 20100118, end: 20100118
  26. 5-FU MEDAC [Suspect]
     Indication: COLORECTAL CANCER
     Dosage: CYCLE 2
     Route: 042
     Dates: start: 20100119, end: 20100120
  27. 5-FU MEDAC [Suspect]
     Indication: COLORECTAL CANCER
     Dosage: CYCLE 3 BOLUS INJECTION PLUS INFUSION START - AS USED DOSE: 2400+400 MG
     Route: 042
     Dates: start: 20100201, end: 20100201
  28. 5-FU MEDAC [Suspect]
     Indication: COLORECTAL CANCER
     Dosage: CYCLE 2
     Route: 042
     Dates: start: 20100202, end: 20100203
  29. 5-FU MEDAC [Suspect]
     Indication: COLORECTAL CANCER
     Dosage: CYCLE 3 BOLUS INJECTION PLUS INFUSION START - AS USED DOSE: 2400+400 MG
     Route: 042
     Dates: start: 20100215, end: 20100215
  30. 5-FU MEDAC [Suspect]
     Indication: COLORECTAL CANCER
     Dosage: CYCLE 3
     Route: 042
     Dates: start: 20100216, end: 20100217
  31. 5-FU MEDAC [Suspect]
     Indication: COLORECTAL CANCER
     Dosage: CYCLE 4 BOLUS INJECTION PLUS INFUSION START - AS USED DOSE: 2400+400 MG
     Route: 042
     Dates: start: 20100308, end: 20100308
  32. 5-FU MEDAC [Suspect]
     Indication: COLORECTAL CANCER
     Dosage: CYCLE 4
     Route: 042
     Dates: start: 20100309, end: 20100310
  33. 5-FU MEDAC [Suspect]
     Indication: COLORECTAL CANCER
     Dosage: CYCLE 4 BOLUS INJECTION PLUS INFUSION START - AS USED DOSE: 2400+400 MG
     Route: 042
     Dates: start: 20100329, end: 20100329
  34. 5-FU MEDAC [Suspect]
     Indication: COLORECTAL CANCER
     Dosage: CYCLE 4
     Route: 042
     Dates: start: 20100330, end: 20100331
  35. 5-FU MEDAC [Suspect]
     Indication: COLORECTAL CANCER
     Dosage: CYCLE 5 BOLUS INJECTION PLUS INFUSION START - AS USED DOSE: 2400 + 400 MG
     Route: 042
     Dates: start: 20100412, end: 20100412
  36. 5-FU MEDAC [Suspect]
     Indication: COLORECTAL CANCER
     Dosage: CYCLE 5 BOLUS INJECTION PLUS INFUSION START
     Route: 042
     Dates: start: 20100413, end: 20100414
  37. CAMPTO [Suspect]
     Indication: COLORECTAL CANCER
     Dosage: CYCLE 1
     Route: 042
     Dates: start: 20091207, end: 20091207
  38. CAMPTO [Suspect]
     Indication: COLORECTAL CANCER
     Dosage: CYCLE 1
     Route: 042
     Dates: start: 20091221, end: 20091221
  39. CAMPTO [Suspect]
     Indication: COLORECTAL CANCER
     Dosage: CYCLE 2
     Route: 042
     Dates: start: 20100104, end: 20100104
  40. CAMPTO [Suspect]
     Indication: COLORECTAL CANCER
     Dosage: CYCLE 2
     Route: 042
     Dates: start: 20100118, end: 20100118
  41. CAMPTO [Suspect]
     Indication: COLORECTAL CANCER
     Dosage: CYCLE 3
     Route: 042
     Dates: start: 20100201, end: 20100201
  42. CAMPTO [Suspect]
     Indication: COLORECTAL CANCER
     Dosage: CYCLE 3
     Route: 042
     Dates: start: 20100215, end: 20100215
  43. CAMPTO [Suspect]
     Indication: COLORECTAL CANCER
     Dosage: CYCLE 4
     Route: 042
     Dates: start: 20100308, end: 20100308
  44. CAMPTO [Suspect]
     Indication: COLORECTAL CANCER
     Dosage: CYCLE 4
     Route: 042
     Dates: start: 20100329, end: 20100329
  45. CAMPTO [Suspect]
     Indication: COLORECTAL CANCER
     Dosage: CYCLE 5
     Route: 042
     Dates: start: 20100412, end: 20100412
  46. ADDITIONAL STUDY MEDICATION [Suspect]
  47. ISOKET RETARD [Concomitant]
     Indication: ISCHAEMIC HEART DISEASE PROPHYLAXIS
     Dosage: 40 MG (DAILY DOSE), ,
     Dates: start: 1980
  48. ASS [Concomitant]
     Indication: ISCHAEMIC HEART DISEASE PROPHYLAXIS
     Dosage: 100 MG (DAILY DOSE), ,
     Dates: start: 1980
  49. SIMVABETA [Concomitant]
     Indication: BLOOD CHOLESTEROL INCREASED
     Dosage: 30 MG (DAILY DOSE), ,
     Dates: start: 1980
  50. METOPROLOL [Concomitant]
     Indication: HYPERTENSION
     Dosage: 5 MG (DAILY DOSE), ,
     Dates: start: 2009
  51. PANTOZOL [Concomitant]
     Indication: DYSPEPSIA
     Dosage: 40 MG (DAILY DOSE), ,
     Dates: start: 20091216
  52. BIFITERAL [Concomitant]
     Indication: FAECES HARD
     Dosage: 20 ML (DAILY DOSE), ,
     Dates: start: 20100104
  53. KEVATRIL [Concomitant]
     Indication: VOMITING
     Dosage: 3 MG (DAILY DOSE), ,
     Dates: start: 20100118, end: 20100118
  54. KEVATRIL [Concomitant]
     Indication: VOMITING
     Dosage: 2 MG (DAILY DOSE), ,
     Dates: start: 20100119, end: 20100120
  55. KEVATRIL [Concomitant]
     Indication: VOMITING
     Dosage: 3 MG (DAILY DOSE), ,
     Dates: start: 20100201, end: 20100201
  56. KEVATRIL [Concomitant]
     Indication: VOMITING
     Dosage: 2 MG (DAILY DOSE), ,
     Dates: start: 20100202, end: 20100203
  57. KEVATRIL [Concomitant]
     Indication: VOMITING
     Dosage: 3 MG (DAILY DOSE), ,
     Dates: start: 20100215, end: 20100215
  58. KEVATRIL [Concomitant]
     Indication: VOMITING
     Dosage: 2 MG (DAILY DOSE), ,
     Dates: start: 20100216, end: 20100217
  59. KEVATRIL [Concomitant]
     Indication: VOMITING
     Dosage: 3 MG (DAILY DOSE), ,
     Dates: start: 20100308, end: 20100308
  60. KEVATRIL [Concomitant]
     Indication: VOMITING
     Dosage: 2 MG (DAILY DOSE), ,
     Dates: start: 20100309, end: 20100310
  61. KEVATRIL [Concomitant]
     Indication: VOMITING
     Dosage: 3 MG (DAILY DOSE), ,
     Dates: start: 20100329, end: 20100329
  62. KEVATRIL [Concomitant]
     Indication: VOMITING
     Dosage: 2 MG (DAILY DOSE), ,
     Dates: start: 20100330, end: 20100331
  63. KEVATRIL [Concomitant]
     Indication: VOMITING
     Dosage: 3 MG (DAILY DOSE), ,
     Dates: start: 20100412, end: 20100412
  64. KEVATRIL [Concomitant]
     Indication: VOMITING
     Dosage: 2 MG (DAILY DOSE), ,
     Dates: start: 20100413, end: 20100414
  65. FORTECORTIN [Concomitant]
     Indication: VOMITING
     Dosage: 20 MG (DAILY DOSE), ,
     Dates: start: 20100118, end: 20100118
  66. FORTECORTIN [Concomitant]
     Indication: VOMITING
     Dosage: 16 MG (DAILY DOSE), ,
     Dates: start: 20100119, end: 20100120
  67. FORTECORTIN [Concomitant]
     Indication: VOMITING
     Dosage: 20 MG (DAILY DOSE), ,
     Dates: start: 20100201, end: 20100201
  68. FORTECORTIN [Concomitant]
     Indication: VOMITING
     Dosage: 16 MG (DAILY DOSE), ,
     Dates: start: 20100202, end: 20100202
  69. FORTECORTIN [Concomitant]
     Indication: VOMITING
     Dosage: 16 MG (DAILY DOSE), ,
     Dates: start: 20100216, end: 20100217
  70. FORTECORTIN [Concomitant]
     Indication: VOMITING
     Dosage: 20 MG (DAILY DOSE), ,
     Dates: start: 20100308, end: 20100308
  71. FORTECORTIN [Concomitant]
     Indication: VOMITING
     Dosage: 16 MG (DAILY DOSE), ,
     Dates: start: 20100309, end: 20100310
  72. FORTECORTIN [Concomitant]
     Indication: VOMITING
     Dosage: 20 MG (DAILY DOSE), ,
     Dates: start: 20100329, end: 20100329
  73. FORTECORTIN [Concomitant]
     Indication: VOMITING
     Dosage: 16 MG (DAILY DOSE), ,
     Dates: start: 20100330, end: 20100331
  74. FORTECORTIN [Concomitant]
     Indication: VOMITING
     Dosage: 20 MG (DAILY DOSE), ,
     Dates: start: 20100412, end: 20100412
  75. FORTECORTIN [Concomitant]
     Indication: VOMITING
     Dosage: 16 MG (DAILY DOSE), ,
     Dates: start: 20100413, end: 20100414
  76. CLEXANE [Concomitant]
     Indication: THROMBOSIS PROPHYLAXIS
     Dosage: 0.12 ML (DAILY DOSE), ,
     Dates: start: 20100422

REACTIONS (1)
  - Pulmonary embolism [Recovered/Resolved]
